FAERS Safety Report 10532723 (Version 2)
Quarter: 2015Q2

REPORT INFORMATION
  Report Type: Spontaneous
  Country: DE (occurrence: DE)
  Receive Date: 20141021
  Receipt Date: 20150415
  Transmission Date: 20150821
  Serious: Yes (Hospitalization)
  Sender: FDA-Public Use
  Company Number: DE-MYLANLABS-2014M1007047

PATIENT

DRUGS (3)
  1. ESCITALOPRAM [Suspect]
     Active Substance: ESCITALOPRAM OXALATE
     Indication: SUICIDAL BEHAVIOUR
     Dosage: 500 MG, TOTAL
     Route: 048
     Dates: start: 20141006, end: 20141006
  2. LAMOTRIGIN DURA [Suspect]
     Active Substance: LAMOTRIGINE
     Indication: SUICIDAL BEHAVIOUR
     Dosage: 950 MG, TOTAL
     Route: 048
     Dates: start: 20141006, end: 20141006
  3. ANAFRANIL [Suspect]
     Active Substance: CLOMIPRAMINE HYDROCHLORIDE
     Indication: SUICIDAL BEHAVIOUR
     Dosage: 7500 MG, TOTAL
     Route: 048
     Dates: start: 20141006, end: 20141006

REACTIONS (9)
  - Agitation [Recovered/Resolved]
  - Tachycardia [Recovered/Resolved]
  - Rhabdomyolysis [Recovered/Resolved]
  - Blood pressure systolic decreased [Recovered/Resolved]
  - Renal failure [Recovered/Resolved]
  - Gastrointestinal sounds abnormal [Recovered/Resolved]
  - Suicidal behaviour [Recovered/Resolved]
  - Bundle branch block right [Recovered/Resolved]
  - Vomiting [Recovered/Resolved]

NARRATIVE: CASE EVENT DATE: 20141006
